FAERS Safety Report 13179062 (Version 2)
Quarter: 2017Q1

REPORT INFORMATION
  Report Type: Spontaneous
  Country: CH (occurrence: CH)
  Receive Date: 20170202
  Receipt Date: 20170303
  Transmission Date: 20170428
  Serious: Yes (Hospitalization, Other)
  Sender: FDA-Public Use
  Company Number: CH-NAPPMUNDI-DEU-2017-0018549

PATIENT
  Age: 54 Year
  Sex: Female

DRUGS (8)
  1. ZOLPIDEM [Concomitant]
     Active Substance: ZOLPIDEM\ZOLPIDEM TARTRATE
     Indication: SLEEP DISORDER
     Dosage: 10 MG, DAILY
  2. PANTOPRAZOLE [Concomitant]
     Active Substance: PANTOPRAZOLE SODIUM
     Indication: GASTROOESOPHAGEAL REFLUX DISEASE
     Dosage: 40 MG, DAILY
     Route: 048
  3. SEVRE-LONG [Suspect]
     Active Substance: MORPHINE SULFATE
     Dosage: 1800 MG, DAILY
     Route: 048
     Dates: start: 20140806, end: 20141008
  4. METHADONE [Suspect]
     Active Substance: METHADONE HYDROCHLORIDE
     Dosage: 150 MG, DAILY
     Route: 065
  5. METHADONE [Suspect]
     Active Substance: METHADONE HYDROCHLORIDE
     Dosage: UNK, SEE TEXT
     Route: 065
  6. TORASEMID [Concomitant]
     Active Substance: TORSEMIDE
     Indication: OEDEMA
     Dosage: 10 MG, DAILY
     Route: 048
  7. SEVRE-LONG [Suspect]
     Active Substance: MORPHINE SULFATE
     Indication: DRUG WITHDRAWAL MAINTENANCE THERAPY
     Dosage: 2120 MG, DAILY
     Route: 048
     Dates: start: 20141008
  8. METHADONE [Suspect]
     Active Substance: METHADONE HYDROCHLORIDE
     Indication: DRUG DEPENDENCE
     Dosage: 180 MG, DAILY
     Route: 065

REACTIONS (7)
  - Irritability [Recovered/Resolved]
  - Persecutory delusion [Recovered/Resolved]
  - Psychomotor hyperactivity [Recovered/Resolved]
  - Psychiatric decompensation [Recovered/Resolved]
  - Hallucination, auditory [Recovered/Resolved]
  - Acute psychosis [Recovered/Resolved]
  - Mental impairment [Recovered/Resolved]

NARRATIVE: CASE EVENT DATE: 20140813
